FAERS Safety Report 9298339 (Version 1)
Quarter: 2013Q2

REPORT INFORMATION
  Report Type: Report from Study
  Country: AR (occurrence: AR)
  Receive Date: 20130520
  Receipt Date: 20130520
  Transmission Date: 20140414
  Serious: Yes (Other)
  Sender: FDA-Public Use
  Company Number: PHHY2013AR049876

PATIENT
  Sex: Female

DRUGS (2)
  1. STALEVO [Suspect]
     Indication: PARKINSON^S DISEASE
     Dosage: 150 MG, BID
     Route: 048
  2. STALEVO [Suspect]
     Dosage: 200 MG (1 TABLET OF 150 MG+ 1 TABLET OF 50 MG), QD
     Route: 048

REACTIONS (3)
  - Road traffic accident [Not Recovered/Not Resolved]
  - Tibia fracture [Not Recovered/Not Resolved]
  - Pain in extremity [Not Recovered/Not Resolved]
